FAERS Safety Report 16875279 (Version 1)
Quarter: 2019Q4

REPORT INFORMATION
  Report Type: Spontaneous
  Country: US (occurrence: US)
  Receive Date: 20191001
  Receipt Date: 20191001
  Transmission Date: 20200122
  Serious: No
  Sender: FDA-Public Use
  Company Number: US-AMGEN INC.-USASP2019152580

PATIENT
  Age: 74 Year

DRUGS (19)
  1. TOPAMAX [Concomitant]
     Active Substance: TOPIRAMATE
     Indication: MIGRAINE
     Dosage: 25 MILLIGRAM, QHS
  2. DIAZEPAM. [Concomitant]
     Active Substance: DIAZEPAM
     Indication: IRRITABLE BOWEL SYNDROME
  3. IMIPRAMINE [Concomitant]
     Active Substance: IMIPRAMINE
     Indication: MIGRAINE
     Dosage: 40 MILLIGRAM, QHS
  4. TEMAZEPAM. [Concomitant]
     Active Substance: TEMAZEPAM
     Indication: MIGRAINE
     Dosage: 15 MILLIGRAM, QHS
  5. PRILOSEC [Concomitant]
     Active Substance: OMEPRAZOLE MAGNESIUM
     Indication: GASTRIC ULCER
     Dosage: 20 MILLIGRAM, AS NECESSARY
  6. DIAZEPAM. [Concomitant]
     Active Substance: DIAZEPAM
     Indication: MIGRAINE
     Dosage: 5-10 MG, AS NECESSARY
  7. ALIGN [Concomitant]
     Active Substance: BIFIDOBACTERIUM LONGUM SUBSP. INFANTIS
     Dosage: UNK
  8. AJOVY [Suspect]
     Active Substance: FREMANEZUMAB-VFRM
     Indication: MIGRAINE
     Dosage: 225 MILLIGRAM, QMO
     Route: 065
     Dates: start: 20181111
  9. DICLOFENAC [Concomitant]
     Active Substance: DICLOFENAC
     Dosage: UNK UNK, QD, 3%, APPLIED A.M. AND P.M. TO THE NECK AREA
  10. IBUPROFEN. [Concomitant]
     Active Substance: IBUPROFEN
     Dosage: 200 MILLIGRAM, 1-2 OCCASIONALLY
  11. FIORICET [Concomitant]
     Active Substance: ACETAMINOPHEN\BUTALBITAL\CAFFEINE
     Indication: MIGRAINE
  12. TYLENOL WITH CODEINE [Concomitant]
     Active Substance: ACETAMINOPHEN\CODEINE PHOSPHATE
     Dosage: 500 MILLIGRAM, APPROX. 3/DAY
  13. MEDIZYME [SERRAPEPTASE] [Concomitant]
     Dosage: UNK
  14. VITAMIN B12 [Concomitant]
     Active Substance: CYANOCOBALAMIN
     Dosage: UNK
  15. COENZYME Q10 [Concomitant]
     Active Substance: UBIDECARENONE
     Dosage: UNK
  16. MELATONIN [Concomitant]
     Active Substance: MELATONIN
     Dosage: UNK UNK, QHS
  17. AIMOVIG [Suspect]
     Active Substance: ERENUMAB-AOOE
     Indication: MIGRAINE
     Dosage: UNK
     Route: 065
  18. ZANTAC [Concomitant]
     Active Substance: RANITIDINE HYDROCHLORIDE
     Indication: GASTRIC ULCER
     Dosage: 150 MILLIGRAM, QHS
  19. LIPITOR [Concomitant]
     Active Substance: ATORVASTATIN CALCIUM
     Dosage: 10 MILLIGRAM, QHS

REACTIONS (3)
  - Fatigue [Not Recovered/Not Resolved]
  - Therapeutic response shortened [Unknown]
  - Irritable bowel syndrome [Not Recovered/Not Resolved]
